FAERS Safety Report 5546741-4 (Version None)
Quarter: 2007Q4

REPORT INFORMATION
  Report Type: 
  Country: None (occurrence: None)
  Receive Date: 20071207
  Receipt Date: 20071207
  Transmission Date: 20080405
  Serious: Yes (Hospitalization)
  Sender: FDA-Public Use
  Company Number: None

PATIENT
  Sex: Female
  Weight: 65.1 kg

DRUGS (2)
  1. CYTARABINE [Suspect]
     Dosage: 25500 MG
  2. MITOXANTRONE HCL [Suspect]
     Dosage: 136 MG

REACTIONS (14)
  - BRAIN DEATH [None]
  - BRAIN OEDEMA [None]
  - COAGULOPATHY [None]
  - CONTINUOUS HAEMODIAFILTRATION [None]
  - DRUG RESISTANCE [None]
  - FLUID OVERLOAD [None]
  - INTRACRANIAL VENOUS SINUS THROMBOSIS [None]
  - MULTI-ORGAN FAILURE [None]
  - NEUTROPENIC SEPSIS [None]
  - PSEUDOMONAL BACTERAEMIA [None]
  - RENAL FAILURE ACUTE [None]
  - RESPIRATORY DISTRESS [None]
  - TONSILLAR DISORDER [None]
  - TROPONIN INCREASED [None]
